FAERS Safety Report 5794952-5 (Version None)
Quarter: 2008Q2

REPORT INFORMATION
  Report Type: 
  Country: None (occurrence: None)
  Receive Date: 20080626
  Receipt Date: 20080619
  Transmission Date: 20081010
  Serious: Yes (Hospitalization)
  Sender: FDA-Public Use
  Company Number: 2008SP004937

PATIENT
  Age: 76 Year
  Sex: Female
  Weight: 66 kg

DRUGS (5)
  1. TEMOZOLOMIDE [Suspect]
     Indication: MALIGNANT GLIOMA
     Dosage: 350 MG; QD; 260 MG; 170 MG
     Dates: start: 20071120, end: 20071124
  2. TEMOZOLOMIDE [Suspect]
     Indication: MALIGNANT GLIOMA
     Dosage: 350 MG; QD; 260 MG; 170 MG
     Dates: start: 20071224, end: 20071228
  3. TEMOZOLOMIDE [Suspect]
     Indication: MALIGNANT GLIOMA
     Dosage: 350 MG; QD; 260 MG; 170 MG
     Dates: start: 20080303, end: 20080307
  4. LEVOTHYROXINE SODIUM [Concomitant]
     Indication: DISEASE RECURRENCE
  5. OMEPRAZOLE [Concomitant]

REACTIONS (1)
  - NEUTROPENIC SEPSIS [None]
